FAERS Safety Report 15171097 (Version 1)
Quarter: 2018Q3

REPORT INFORMATION
  Report Type: Spontaneous
  Country: US (occurrence: US)
  Receive Date: 20180720
  Receipt Date: 20180720
  Transmission Date: 20181010
  Serious: Yes (Other)
  Sender: FDA-Public Use
  Company Number: US-PFIZER INC-2018288385

PATIENT
  Age: 32 Year
  Sex: Male

DRUGS (12)
  1. MIDAZOLAM [Suspect]
     Active Substance: MIDAZOLAM HYDROCHLORIDE
     Dosage: 2 MG, UNK (TITRATED DOWN TO 2 MG/HR)
  2. MIDAZOLAM [Suspect]
     Active Substance: MIDAZOLAM HYDROCHLORIDE
     Dosage: UNK
     Route: 040
  3. MIDAZOLAM [Suspect]
     Active Substance: MIDAZOLAM HYDROCHLORIDE
     Dosage: 9 MG, UNK (9 MG/HR)
     Route: 040
  4. FENTANYL CITRATE. [Suspect]
     Active Substance: FENTANYL CITRATE
     Indication: HALLUCINATION
     Dosage: UNK
     Route: 040
  5. MIDAZOLAM [Suspect]
     Active Substance: MIDAZOLAM HYDROCHLORIDE
     Dosage: 7 MG, UNK (7 MG/HR)
  6. MIDAZOLAM [Suspect]
     Active Substance: MIDAZOLAM HYDROCHLORIDE
     Indication: AGITATION
     Dosage: 9 MG, UNK(9 MG/HR)
     Route: 040
  7. MIDAZOLAM [Suspect]
     Active Substance: MIDAZOLAM HYDROCHLORIDE
     Dosage: 8 MG, UNK (8 MG/HR)(INCREASED)
  8. FENTANYL CITRATE. [Suspect]
     Active Substance: FENTANYL CITRATE
     Dosage: 300 UG, UNK (300 MCG/ HR) (WITH MULTIPLE BOLUSES)
     Route: 040
  9. FENTANYL CITRATE. [Suspect]
     Active Substance: FENTANYL CITRATE
     Indication: AGITATION
     Dosage: 400 UG, UNK (400 MCG/HR)
  10. MIDAZOLAM [Suspect]
     Active Substance: MIDAZOLAM HYDROCHLORIDE
     Dosage: UNK (TITRATED OFF)
     Route: 041
  11. DILTIAZEM. [Concomitant]
     Active Substance: DILTIAZEM
     Indication: ATRIAL FIBRILLATION
     Dosage: 12.5 MG, UNK (INFUSION OF 12.5 MG/HR)
  12. FENTANYL CITRATE. [Suspect]
     Active Substance: FENTANYL CITRATE
     Dosage: 400 UG, UNK (REMAINED ON 400 MCG/HR)

REACTIONS (3)
  - Drug withdrawal syndrome [Unknown]
  - Atrial fibrillation [Unknown]
  - Drug ineffective [Unknown]
